FAERS Safety Report 5799898-4 (Version None)
Quarter: 2008Q3

REPORT INFORMATION
  Report Type: 
  Country: None (occurrence: None)
  Receive Date: 20080701
  Receipt Date: 20080616
  Transmission Date: 20090109
  Serious: Yes (Hospitalization)
  Sender: FDA-Public Use
  Company Number: 2008AL003449

PATIENT
  Age: 66 Year
  Sex: Male
  Weight: 154.223 kg

DRUGS (12)
  1. DIGOXIN [Suspect]
     Indication: ATRIAL FIBRILLATION
     Dosage: 0.25 MG DAILY PO
     Route: 048
     Dates: start: 20080415, end: 20080425
  2. FLEXRIL [Concomitant]
  3. METHADON HCL TAB [Concomitant]
  4. SYNTHROID [Concomitant]
  5. SIMVASTATIN [Concomitant]
  6. AMIODARONE HCL [Concomitant]
  7. DILTIAZEM HCL [Concomitant]
  8. PLAVIX [Concomitant]
  9. LASIX [Concomitant]
  10. CARZEM [Concomitant]
  11. LEVOTHROXINE [Concomitant]
  12. OMEPRAZOLE [Concomitant]

REACTIONS (4)
  - BLOOD PRESSURE INCREASED [None]
  - DIZZINESS [None]
  - DYSPNOEA [None]
  - LOCALISED INFECTION [None]
